FAERS Safety Report 7961636-4 (Version None)
Quarter: 2011Q4

REPORT INFORMATION
  Report Type: 
  Country: None (occurrence: None)
  Receive Date: 20111202
  Receipt Date: 20111202
  Transmission Date: 20120403
  Serious: No
  Sender: FDA-Public Use
  Company Number: None

PATIENT
  Age: 66 Year
  Sex: Male
  Weight: 115.6672 kg

DRUGS (2)
  1. OXALIPLATIN [Suspect]
     Indication: COLON CANCER
     Dosage: 160 MG Q2 WKS IV
     Route: 042
     Dates: start: 20110502, end: 20111130
  2. OXALIPLATIN [Suspect]

REACTIONS (6)
  - INFUSION RELATED REACTION [None]
  - BLOOD PRESSURE DECREASED [None]
  - FEELING HOT [None]
  - VOMITING [None]
  - DYSPNOEA [None]
  - ERYTHEMA [None]
